FAERS Safety Report 10137109 (Version 1)
Quarter: 2014Q2

REPORT INFORMATION
  Report Type: Spontaneous
  Country: GB (occurrence: None)
  Receive Date: 20140425
  Receipt Date: 20140425
  Transmission Date: 20141212
  Serious: Yes (Hospitalization)
  Sender: FDA-Public Use
  Company Number: 2305196

PATIENT
  Age: 67 Year
  Sex: Female

DRUGS (9)
  1. GENTAMICIN SULFATE [Suspect]
     Indication: PRODUCT USED FOR UNKNOWN INDICATION
     Dosage: 325 MG MILLIGRAM(S), UNKNOWN, INTRAVENOUS
     Route: 042
     Dates: start: 20120809
  2. MEROPENEM [Suspect]
     Indication: PNEUMONIA
     Route: 041
     Dates: start: 20120819, end: 20120829
  3. MEROPENEM [Suspect]
     Indication: URINARY TRACT INFECTION
     Route: 041
     Dates: start: 20120819, end: 20120829
  4. PIPERACILLIN AND TAZOBACTAM [Suspect]
     Indication: PRODUCT USED FOR UNKNOWN INDICATION
     Route: 041
     Dates: start: 20120809, end: 20120811
  5. PIPERACILLIN AND TAZOBACTAM [Suspect]
     Indication: URINARY TRACT INFECTION
     Route: 041
     Dates: start: 20120809, end: 20120811
  6. DOXYCYCLINE [Suspect]
     Indication: PRODUCT USED FOR UNKNOWN INDICATION
     Dosage: 200MG STAT THEN 100MG ONCE DAILY FOR 7 DAYS.
     Dates: start: 20120703, end: 20120710
  7. TEICOPLANIN [Suspect]
     Indication: PRODUCT USED FOR UNKNOWN INDICATION
     Route: 041
     Dates: start: 20120819, end: 20120824
  8. TRIMETHOPRIM [Suspect]
     Indication: URINARY TRACT INFECTION
     Route: 048
     Dates: start: 20120808, end: 20120811
  9. OMEPRAZOLE [Concomitant]

REACTIONS (1)
  - Clostridium difficile infection [None]
